FAERS Safety Report 12936970 (Version 2)
Quarter: 2017Q1

REPORT INFORMATION
  Report Type: Report from Study
  Country: US (occurrence: US)
  Receive Date: 20161114
  Receipt Date: 20170227
  Transmission Date: 20170428
  Serious: Yes (Hospitalization, Other)
  Sender: FDA-Public Use
  Company Number: US-BAYER-2016-187392

PATIENT
  Age: 66 Year
  Sex: Female
  Weight: 98.41 kg

DRUGS (5)
  1. ADEMPAS [Suspect]
     Active Substance: RIOCIGUAT
     Indication: PULMONARY HYPERTENSION
     Dosage: UNK
     Dates: start: 20151022
  2. ADEMPAS [Suspect]
     Active Substance: RIOCIGUAT
     Indication: PULMONARY HYPERTENSION
     Dosage: 2.5 MG, TID
     Route: 048
  3. ADEMPAS [Suspect]
     Active Substance: RIOCIGUAT
     Indication: PULMONARY HYPERTENSION
     Dosage: 2.5 MG, TID
     Route: 048
  4. ORENITRAM [Suspect]
     Active Substance: TREPROSTINIL
     Dosage: UNK UNK, TID
  5. VENTAVIS [Concomitant]
     Active Substance: ILOPROST
     Dosage: UNK

REACTIONS (9)
  - Fatigue [Unknown]
  - Appendicectomy [None]
  - Abnormal loss of weight [Unknown]
  - Nausea [Unknown]
  - Dyspnoea [Unknown]
  - Hypersensitivity [None]
  - Hypotension [Recovered/Resolved]
  - Joint swelling [Unknown]
  - Vomiting [Unknown]

NARRATIVE: CASE EVENT DATE: 20170208
